FAERS Safety Report 14483322 (Version 2)
Quarter: 2018Q2

REPORT INFORMATION
  Report Type: Spontaneous
  Country: US (occurrence: US)
  Receive Date: 20180204
  Receipt Date: 20180413
  Transmission Date: 20180711
  Serious: No
  Sender: FDA-Public Use
  Company Number: US-GLAXOSMITHKLINE-US2018017926

PATIENT
  Age: 59 Year
  Sex: Female

DRUGS (14)
  1. MAXALT [Concomitant]
     Active Substance: RIZATRIPTAN BENZOATE
  2. PROTONIX [Concomitant]
     Active Substance: PANTOPRAZOLE SODIUM
  3. TOPAMAX [Concomitant]
     Active Substance: TOPIRAMATE
  4. WELLBUTRIN [Concomitant]
     Active Substance: BUPROPION HYDROCHLORIDE
  5. TRAMADOL. [Concomitant]
     Active Substance: TRAMADOL
  6. FLEXERIL [Concomitant]
     Active Substance: CYCLOBENZAPRINE HYDROCHLORIDE
  7. BIOTIN [Concomitant]
     Active Substance: BIOTIN
  8. BENLYSTA [Suspect]
     Active Substance: BELIMUMAB
     Indication: SYSTEMIC LUPUS ERYTHEMATOSUS
     Dosage: 200 MG, WE
     Route: 058
     Dates: start: 20180110
  9. ARMOUR THYROID [Concomitant]
     Active Substance: THYROID, PORCINE
  10. TYLENOL [Concomitant]
     Active Substance: ACETAMINOPHEN
  11. ZOFRAN [Concomitant]
     Active Substance: ONDANSETRON HYDROCHLORIDE
  12. BENLYSTA [Suspect]
     Active Substance: BELIMUMAB
     Indication: SYSTEMIC LUPUS ERYTHEMATOSUS
     Dosage: UNK
     Route: 042
  13. AMBIEN [Concomitant]
     Active Substance: ZOLPIDEM TARTRATE
  14. DIOVAN [Concomitant]
     Active Substance: VALSARTAN

REACTIONS (11)
  - Lower limb fracture [Recovering/Resolving]
  - Insomnia [Unknown]
  - Fatigue [Unknown]
  - Drug ineffective [Unknown]
  - Arthralgia [Recovered/Resolved]
  - Migraine [Unknown]
  - Nodule [Unknown]
  - Drug dose omission [Unknown]
  - Product storage error [Unknown]
  - Cyst [Not Recovered/Not Resolved]
  - Arthralgia [Unknown]

NARRATIVE: CASE EVENT DATE: 20180131
